FAERS Safety Report 8384236-3 (Version None)
Quarter: 2012Q2

REPORT INFORMATION
  Report Type: 
  Country: None (occurrence: None)
  Receive Date: 20120524
  Receipt Date: 20120516
  Transmission Date: 20120825
  Serious: Yes (Disabling)
  Sender: FDA-Public Use
  Company Number: US-MERCK-1203USA03320

PATIENT
  Age: 69 Year
  Sex: Female

DRUGS (1)
  1. FOSAMAX [Suspect]
     Indication: OSTEOPOROSIS
     Route: 048
     Dates: start: 19960101, end: 20090601

REACTIONS (14)
  - GASTROOESOPHAGEAL REFLUX DISEASE [None]
  - ANXIETY [None]
  - PELVIC FRACTURE [None]
  - BLOOD CHOLESTEROL INCREASED [None]
  - STRESS FRACTURE [None]
  - LOW TURNOVER OSTEOPATHY [None]
  - HYPERTENSION [None]
  - RENAL CYST [None]
  - FEMUR FRACTURE [None]
  - OSTEOPOROSIS [None]
  - HYPOTHYROIDISM [None]
  - FALL [None]
  - VITAMIN D DEFICIENCY [None]
  - IMPAIRED HEALING [None]
